FAERS Safety Report 19094685 (Version 3)
Quarter: 2022Q1

REPORT INFORMATION
  Report Type: Spontaneous
  Country: IT (occurrence: IT)
  Receive Date: 20210406
  Receipt Date: 20220103
  Transmission Date: 20220423
  Serious: Yes (Death, Other)
  Sender: FDA-Public Use
  Company Number: IT-MINISAL02-706385

PATIENT
  Age: 67 Year
  Sex: Female

DRUGS (3)
  1. IRINOTECAN [Suspect]
     Active Substance: IRINOTECAN
     Indication: Pancreatic carcinoma
     Dosage: 120 MILLIGRAM, CYCLICAL
     Route: 013
     Dates: start: 20210121
  2. OXALIPLATIN [Suspect]
     Active Substance: OXALIPLATIN
     Indication: Pancreatic carcinoma
     Dosage: 68 MILLIGRAM, CYCLICAL
     Route: 013
     Dates: start: 20210121
  3. FLUOROURACIL [Suspect]
     Active Substance: FLUOROURACIL
     Indication: Pancreatic carcinoma
     Dosage: 1920 MILLIGRAM, CYCLICAL
     Route: 013
     Dates: start: 20210121

REACTIONS (2)
  - Pancreatitis necrotising [Fatal]
  - Splenic artery thrombosis [Fatal]

NARRATIVE: CASE EVENT DATE: 20210314
